FAERS Safety Report 7504155-1 (Version None)
Quarter: 2011Q2

REPORT INFORMATION
  Report Type: 
  Country: None (occurrence: None)
  Receive Date: 20110525
  Receipt Date: 20110512
  Transmission Date: 20111010
  Serious: Yes (Hospitalization)
  Sender: FDA-Public Use
  Company Number: US-ELI_LILLY_AND_COMPANY-US201105004439

PATIENT
  Sex: Female

DRUGS (21)
  1. ADDERALL 10 [Concomitant]
     Dosage: 30 MG, QD
  2. LORAZEPAM [Concomitant]
     Dosage: 0.5 MG, EVERY 6 HRS
  3. LAMOTRIGINE [Concomitant]
     Dosage: 300 MG, QD
  4. ZYPREXA [Concomitant]
     Dosage: 10 MG, UNK
  5. SYNTHROID [Concomitant]
     Dosage: 150 UG, UNK
  6. FORTEO [Suspect]
     Indication: OSTEOPOROSIS
     Dosage: 20 UG, QD
     Route: 065
  7. EFFEXOR XR [Concomitant]
     Dosage: 225 MG, QD
  8. SENOKOT [Concomitant]
     Dosage: UNK, BID
  9. CALCIUM CITRATE [Concomitant]
  10. MIRALAX [Concomitant]
     Dosage: 17 MG, QD
  11. ASPIRIN [Concomitant]
     Dosage: 325 MG, UNK
  12. NEXIUM [Concomitant]
     Dosage: 40 MG, UNK
  13. NAPROXEN [Concomitant]
     Dosage: 250 MG, UNK
  14. PERCOCET [Concomitant]
     Dosage: UNK, EVERY 6 HRS
  15. CEREFOLIN NAC [Concomitant]
     Dosage: UNK, QD
  16. SIMVASTATIN [Concomitant]
     Dosage: 20 MG, UNK
  17. AQUATEARS [Concomitant]
     Dosage: UNK, BID
  18. LUMIGAN [Concomitant]
  19. ALLEGRA [Concomitant]
     Dosage: 60 MG, UNK
  20. CLONAZEPAM [Concomitant]
     Dosage: 1 MG, TID
  21. NIASPAN [Concomitant]
     Dosage: 300 MG, QD

REACTIONS (2)
  - INCORRECT STORAGE OF DRUG [None]
  - COMPRESSION FRACTURE [None]
